FAERS Safety Report 13162833 (Version 1)
Quarter: 2017Q1

REPORT INFORMATION
  Report Type: Spontaneous
  Country: BR (occurrence: BR)
  Receive Date: 20170130
  Receipt Date: 20170130
  Transmission Date: 20170428
  Serious: Yes (Other)
  Sender: FDA-Public Use
  Company Number: BR-GUERBET LLC-1062493

PATIENT
  Age: 82 Year
  Sex: Male
  Weight: 78 kg

DRUGS (1)
  1. DOTAREM [Suspect]
     Active Substance: GADOTERATE MEGLUMINE
     Indication: NUCLEAR MAGNETIC RESONANCE IMAGING ABDOMINAL
     Route: 042
     Dates: start: 20170113, end: 20170113

REACTIONS (5)
  - Ocular hyperaemia [Recovering/Resolving]
  - Face oedema [Recovering/Resolving]
  - Lacrimation increased [Recovering/Resolving]
  - Urticaria [Recovering/Resolving]
  - Dysphonia [Recovering/Resolving]

NARRATIVE: CASE EVENT DATE: 20170113
